FAERS Safety Report 22270883 (Version 2)
Quarter: 2023Q2

REPORT INFORMATION
  Report Type: Report from Study
  Country: US (occurrence: None)
  Receive Date: 20230501
  Receipt Date: 20230517
  Transmission Date: 20230722
  Serious: Yes (Hospitalization)
  Sender: FDA-Public Use
  Company Number: US-ROCHE-3329625

PATIENT
  Age: 70 Year
  Sex: Male
  Weight: 118.6 kg

DRUGS (34)
  1. MOSUNETUZUMAB [Suspect]
     Active Substance: MOSUNETUZUMAB
     Indication: B-cell lymphoma
     Dosage: START DATE OF MOST RECENT DOSE OF STUDY DRUG?PRIOR TO AE/SAE 23-MAR-2023 12:24 PM, 45MG
     Route: 058
     Dates: start: 20230302
  2. MEDROL [Concomitant]
     Active Substance: METHYLPREDNISOLONE
     Indication: Rash
     Route: 048
     Dates: start: 20230314
  3. HYDROCORTISONE [Concomitant]
     Active Substance: HYDROCORTISONE
     Indication: Rash
     Route: 061
     Dates: start: 20230313
  4. OMEPRAZOLE [Concomitant]
     Active Substance: OMEPRAZOLE
     Indication: Gastrooesophageal reflux disease
     Route: 048
     Dates: start: 20230412
  5. ACETAMINOPHEN [Concomitant]
     Active Substance: ACETAMINOPHEN
     Indication: Arthralgia
     Route: 048
     Dates: start: 20230410, end: 20230412
  6. OSCAL [Concomitant]
     Active Substance: CALCIUM CARBONATE
     Route: 048
     Dates: start: 20230410, end: 20230412
  7. CEFAZOLIN [Concomitant]
     Active Substance: CEFAZOLIN
     Route: 042
     Dates: start: 20230410, end: 20230410
  8. CEFAZOLIN [Concomitant]
     Active Substance: CEFAZOLIN
     Route: 042
     Dates: start: 20230409, end: 20230410
  9. DOCUSATE SODIUM [Concomitant]
     Active Substance: DOCUSATE SODIUM
     Route: 048
     Dates: start: 20230410, end: 20230412
  10. ENOXAPARIN [Concomitant]
     Active Substance: ENOXAPARIN
     Route: 058
     Dates: start: 20230411, end: 20230412
  11. NICOTINE [Concomitant]
     Active Substance: NICOTINE
     Indication: Nicotine dependence
     Dosage: PATCH
     Route: 062
     Dates: start: 20230411, end: 20230412
  12. PANTOPRAZOLE [Concomitant]
     Active Substance: PANTOPRAZOLE
     Indication: Gastrooesophageal reflux disease
  13. POLYETHYLENE GLYCOL [Concomitant]
     Active Substance: POLYETHYLENE GLYCOL
     Route: 048
     Dates: start: 20230410, end: 20230412
  14. LACTATED RINGERS SOLUTION [Concomitant]
     Active Substance: CALCIUM CHLORIDE\POTASSIUM CHLORIDE\SODIUM CHLORIDE\SODIUM LACTATE
     Route: 042
     Dates: start: 20230410, end: 20230412
  15. ALBUTEROL [Concomitant]
     Active Substance: ALBUTEROL
     Indication: Wheezing
     Route: 055
     Dates: start: 20230410, end: 20230410
  16. FENTANYL [Concomitant]
     Active Substance: FENTANYL
     Indication: Arthralgia
     Dosage: 25 OTHER
     Route: 042
     Dates: start: 20230410, end: 20230410
  17. FENTANYL [Concomitant]
     Active Substance: FENTANYL
     Dosage: 50 OTHER
     Route: 042
     Dates: start: 20230410, end: 20230410
  18. HYDRALAZINE [Concomitant]
     Active Substance: HYDRALAZINE HYDROCHLORIDE
     Indication: Hypertensive crisis
     Route: 042
     Dates: start: 20230410, end: 20230410
  19. HYDROMORPHONE [Concomitant]
     Active Substance: HYDROMORPHONE
     Indication: Arthralgia
     Route: 042
     Dates: start: 20230410, end: 20230410
  20. HYDROMORPHONE [Concomitant]
     Active Substance: HYDROMORPHONE
     Route: 042
     Dates: start: 20230410, end: 20230410
  21. MAGNESIUM HYDROXIDE [Concomitant]
     Active Substance: MAGNESIUM HYDROXIDE
     Route: 048
     Dates: start: 20230410, end: 20230412
  22. MEPERIDINE [Concomitant]
     Active Substance: MEPERIDINE
     Indication: Chills
     Route: 042
     Dates: start: 20230410
  23. MORPHINE [Concomitant]
     Active Substance: MORPHINE
     Indication: Arthralgia
     Route: 042
     Dates: start: 20230410, end: 20230412
  24. MORPHINE [Concomitant]
     Active Substance: MORPHINE
     Route: 042
     Dates: start: 20230410, end: 20230412
  25. OXYCODONE [Concomitant]
     Active Substance: OXYCODONE
     Route: 048
     Dates: start: 20230410, end: 20230412
  26. COMPAZINE [Concomitant]
     Active Substance: PROCHLORPERAZINE MALEATE
     Indication: Nausea
     Route: 042
     Dates: start: 20230410, end: 20230410
  27. COMPAZINE [Concomitant]
     Active Substance: PROCHLORPERAZINE MALEATE
     Indication: Vomiting
  28. TRAMADOL [Concomitant]
     Active Substance: TRAMADOL
     Indication: Arthralgia
     Route: 048
     Dates: start: 20230410, end: 20230412
  29. LOSARTAN [Concomitant]
     Active Substance: LOSARTAN
     Indication: Hypertension
     Route: 048
     Dates: start: 20210821, end: 20230411
  30. LOSARTAN [Concomitant]
     Active Substance: LOSARTAN
     Route: 048
     Dates: start: 20230412
  31. CHOLECALCIFEROL [Concomitant]
     Active Substance: CHOLECALCIFEROL
     Indication: Hyperparathyroidism
     Dosage: 15 OTHER
     Route: 048
  32. HYDROCHLOROTHIAZIDE [Concomitant]
     Active Substance: HYDROCHLOROTHIAZIDE
     Indication: Hypertension
     Route: 048
     Dates: start: 20210821, end: 20230411
  33. CYANOCOBALAMIN [Concomitant]
     Active Substance: CYANOCOBALAMIN
     Dosage: 500 OTHER
     Route: 048
  34. ZINC SULFATE [Concomitant]
     Active Substance: ZINC SULFATE
     Route: 048

REACTIONS (1)
  - Hip fracture [Recovered/Resolved]

NARRATIVE: CASE EVENT DATE: 20230409
